FAERS Safety Report 22332526 (Version 1)
Quarter: 2023Q2

REPORT INFORMATION
  Report Type: Spontaneous
  Country: US (occurrence: None)
  Receive Date: 20230516
  Receipt Date: 20230516
  Transmission Date: 20230722
  Serious: Yes (Death)
  Sender: FDA-Public Use
  Company Number: None

PATIENT
  Age: 68 Year

DRUGS (1)
  1. BOTOX [Suspect]
     Active Substance: ONABOTULINUMTOXINA
     Indication: Torticollis
     Dosage: 100 UNIT INJECTION??INJECT UP TO 300 UNITS IN THE MUSCLE IN THE NECK AREAS EVERY 3 MONTHS
     Dates: start: 20180123, end: 20230514

REACTIONS (1)
  - Death [None]

NARRATIVE: CASE EVENT DATE: 20230514
